FAERS Safety Report 4413613-8 (Version None)
Quarter: 2004Q2

REPORT INFORMATION
  Report Type: 
  Country: None (occurrence: None)
  Receive Date: 20040630
  Receipt Date: 20040301
  Transmission Date: 20050107
  Serious: No
  Sender: FDA-Public Use
  Company Number: 04P-163-0251702-00

PATIENT
  Age: 55 Year
  Sex: Female
  Weight: 79.3795 kg

DRUGS (13)
  1. HUMIRA [Suspect]
     Indication: RHEUMATOID ARTHRITIS
     Dosage: 40 MG, 1 IN 2 WK, SUBCUTANEOUS
     Route: 058
     Dates: start: 20040217
  2. DYAZIDE [Concomitant]
  3. FENOPROFEN CALCIUM [Concomitant]
  4. ESOMEPRAZOLE [Concomitant]
  5. CONJUGATED ESTROGEN [Concomitant]
  6. TOCOPHEROL CONCENTRATE CAP [Concomitant]
  7. CITRACAL + D [Concomitant]
  8. METHYLCELLULOSE [Concomitant]
  9. MULTIVITAMIN WITH LYCOLENE [Concomitant]
  10. AXOTAL [Concomitant]
  11. ASPIRIN [Concomitant]
  12. ACIDOPHILUS [Concomitant]
  13. MULTI  ENZYMES [Concomitant]

REACTIONS (1)
  - INJECTION SITE BURNING [None]
